FAERS Safety Report 4854378-5 (Version None)
Quarter: 2005Q4

REPORT INFORMATION
  Report Type: 
  Country: None (occurrence: None)
  Receive Date: 20051213
  Receipt Date: 20051213
  Transmission Date: 20060501
  Serious: Yes (Hospitalization)
  Sender: FDA-Public Use
  Company Number: None

PATIENT
  Age: 79 Year
  Sex: Male
  Weight: 91.6 kg

DRUGS (3)
  1. TERAZOSIN STARTER PACK (1,2,5M [Suspect]
     Dosage: 1 MG HS X 2 MG X 12 BY MOUTH X 3 DAYS/ HS DAYS AND 5MG HS X 6 DAYS
     Route: 048
     Dates: start: 20050902, end: 20050906
  2. OMEPRAZOLE [Concomitant]
  3. CEFTRIAZONE SODIUM [Concomitant]

REACTIONS (2)
  - DIZZINESS [None]
  - ORTHOSTATIC HYPOTENSION [None]
